FAERS Safety Report 12500905 (Version 1)
Quarter: 2016Q2

REPORT INFORMATION
  Report Type: Spontaneous
  Country: US (occurrence: US)
  Receive Date: 20160627
  Receipt Date: 20160627
  Transmission Date: 20160815
  Serious: Yes (Other)
  Sender: FDA-Public Use
  Company Number: US-AMGEN-USASP2016080018

PATIENT
  Age: 75 Year
  Sex: Female

DRUGS (1)
  1. PROLIA [Suspect]
     Active Substance: DENOSUMAB
     Indication: PRODUCT USED FOR UNKNOWN INDICATION
     Dosage: UNK
     Route: 065

REACTIONS (10)
  - Bone pain [Unknown]
  - Limb injury [Not Recovered/Not Resolved]
  - Paraesthesia [Unknown]
  - Abdominal pain upper [Unknown]
  - Deafness unilateral [Recovered/Resolved]
  - Skin disorder [Unknown]
  - Muscle spasms [Unknown]
  - Dry skin [Unknown]
  - Hypertension [Unknown]
  - Myalgia [Unknown]
